FAERS Safety Report 19448774 (Version 2)
Quarter: 2021Q2

REPORT INFORMATION
  Report Type: Spontaneous
  Country: ES (occurrence: ES)
  Receive Date: 20210622
  Receipt Date: 20210628
  Transmission Date: 20210717
  Serious: Yes (Life-Threatening, Other)
  Sender: FDA-Public Use
  Company Number: ES-AMGEN-ESPSP2021092956

PATIENT
  Age: 66 Year

DRUGS (3)
  1. MVASI [Suspect]
     Active Substance: BEVACIZUMAB-AWWB
     Indication: PRODUCT USED FOR UNKNOWN INDICATION
     Dosage: UNK
     Route: 065
  2. MVASI [Suspect]
     Active Substance: BEVACIZUMAB-AWWB
     Dosage: (7 CYCLES)
     Route: 065
     Dates: start: 20210608
  3. FOLFIRI [Concomitant]
     Active Substance: FLUOROURACIL\IRINOTECAN\LEUCOVORIN
     Dosage: UNK

REACTIONS (6)
  - Biliary tract disorder [Unknown]
  - Gastric perforation [Unknown]
  - Sepsis [Unknown]
  - Subdiaphragmatic abscess [Unknown]
  - Pleural effusion [Unknown]
  - Pneumothorax [Unknown]
